FAERS Safety Report 4843542-7 (Version None)
Quarter: 2005Q4

REPORT INFORMATION
  Report Type: 
  Country: None (occurrence: None)
  Receive Date: 20051129
  Receipt Date: 20051115
  Transmission Date: 20060501
  Serious: Yes (Death, Hospitalization)
  Sender: FDA-Public Use
  Company Number: GBS050918580

PATIENT
  Age: 79 Year
  Sex: Female

DRUGS (12)
  1. FORTEO [Suspect]
     Indication: OSTEOPOROSIS
  2. FORTEO [Concomitant]
  3. ............................... [Concomitant]
  4. OMEPRAZOLE [Concomitant]
  5. DIGOXIN [Concomitant]
  6. PREDNISONE [Concomitant]
  7. METOCLOPRAMIDE [Concomitant]
  8. WARFARIN SODIUM [Concomitant]
  9. MIRTAZAPINE [Concomitant]
  10. FENTANYL [Concomitant]
  11. SANDO K (POTASSIUM CHLORIDE) [Concomitant]
  12. FUROSEMIDE [Concomitant]

REACTIONS (2)
  - ASTHENIA [None]
  - NAUSEA [None]
